FAERS Safety Report 21686870 (Version 1)
Quarter: 2022Q4

REPORT INFORMATION
  Report Type: Spontaneous
  Country: US (occurrence: None)
  Receive Date: 20221205
  Receipt Date: 20221205
  Transmission Date: 20230112
  Serious: Yes (Death)
  Sender: FDA-Public Use
  Company Number: None

PATIENT
  Age: 61 Year
  Sex: Male
  Weight: 89.72 kg

DRUGS (11)
  1. NEUPOGEN [Suspect]
     Active Substance: FILGRASTIM
     Indication: Anaemia
     Route: 048
  2. AMLODIPINE [Concomitant]
     Active Substance: AMLODIPINE BESYLATE
  3. ARAVA [Concomitant]
     Active Substance: LEFLUNOMIDE
  4. ASPIRIN [Concomitant]
     Active Substance: ASPIRIN
  5. ATORVASTATIN [Concomitant]
     Active Substance: ATORVASTATIN
  6. CENTRUM SILVER [Concomitant]
  7. ENBREL [Concomitant]
  8. NOVOLOG [Concomitant]
     Active Substance: INSULIN ASPART
  9. VALSARTAN [Concomitant]
     Active Substance: VALSARTAN
  10. VITAMIN B12 [Concomitant]
     Active Substance: CYANOCOBALAMIN
  11. VITAMIN D [Concomitant]
     Active Substance: VITAMIN D NOS

REACTIONS (1)
  - Death [None]

NARRATIVE: CASE EVENT DATE: 20221130
